FAERS Safety Report 10472625 (Version 2)
Quarter: 2014Q4

REPORT INFORMATION
  Report Type: Spontaneous
  Country: US (occurrence: US)
  Receive Date: 20140924
  Receipt Date: 20141030
  Transmission Date: 20150528
  Serious: Yes (Other)
  Sender: FDA-Public Use
  Company Number: US-NOVOPROD-423100

PATIENT
  Age: 69 Year
  Sex: Male
  Weight: 88.89 kg

DRUGS (9)
  1. LANTUS [Concomitant]
     Active Substance: INSULIN GLARGINE
     Dosage: 45 U, QD
     Route: 058
     Dates: start: 201409
  2. GLYBURIDE. [Concomitant]
     Active Substance: GLYBURIDE
     Indication: TYPE 2 DIABETES MELLITUS
  3. VICTOZA [Suspect]
     Active Substance: LIRAGLUTIDE
     Dosage: 1.8 MG, QD
     Route: 058
     Dates: start: 201209, end: 201409
  4. METFORMIN [Concomitant]
     Active Substance: METFORMIN HYDROCHLORIDE
     Indication: TYPE 2 DIABETES MELLITUS
     Dosage: UNK
     Route: 048
     Dates: end: 201409
  5. ACTOS [Concomitant]
     Active Substance: PIOGLITAZONE HYDROCHLORIDE
     Indication: TYPE 2 DIABETES MELLITUS
  6. VICTOZA [Suspect]
     Active Substance: LIRAGLUTIDE
     Indication: TYPE 2 DIABETES MELLITUS
     Dosage: 1.2 MG, QD
     Route: 058
     Dates: start: 201207
  7. INVOKANA [Concomitant]
     Active Substance: CANAGLIFLOZIN
     Indication: TYPE 2 DIABETES MELLITUS
     Dosage: 100 MG, QD
     Route: 048
     Dates: start: 201311, end: 201409
  8. GLIPIZIDE. [Concomitant]
     Active Substance: GLIPIZIDE
     Indication: TYPE 2 DIABETES MELLITUS
     Dosage: UNK
     Dates: end: 201409
  9. LANTUS [Concomitant]
     Active Substance: INSULIN GLARGINE
     Indication: TYPE 2 DIABETES MELLITUS
     Route: 058

REACTIONS (2)
  - Pancreatic carcinoma [Not Recovered/Not Resolved]
  - Blood glucose increased [Unknown]

NARRATIVE: CASE EVENT DATE: 2012
